FAERS Safety Report 18556018 (Version 1)
Quarter: 2020Q4

REPORT INFORMATION
  Report Type: Spontaneous
  Country: US (occurrence: US)
  Receive Date: 20201127
  Receipt Date: 20201127
  Transmission Date: 20210114
  Serious: No
  Sender: FDA-Public Use
  Company Number: US-PERRIGO-20US012813

PATIENT

DRUGS (1)
  1. NICOTINE POLACRILEX [Suspect]
     Active Substance: NICOTINE
     Indication: PRODUCT USED FOR UNKNOWN INDICATION
     Dosage: 4 MG, SINGLE
     Route: 048
     Dates: start: 20200901, end: 20200901

REACTIONS (4)
  - Oral pain [Unknown]
  - Oral discomfort [Unknown]
  - Incorrect route of product administration [Recovered/Resolved]
  - Oesophageal pain [Unknown]

NARRATIVE: CASE EVENT DATE: 20200901
